FAERS Safety Report 5067861-7 (Version None)
Quarter: 2006Q3

REPORT INFORMATION
  Report Type: 
  Country: None (occurrence: None)
  Receive Date: 20060714
  Receipt Date: 20060125
  Transmission Date: 20061208
  Serious: Yes (Hospitalization)
  Sender: FDA-Public Use
  Company Number: PHEH2006US01397

PATIENT
  Age: 6 Year
  Sex: Male

DRUGS (8)
  1. TRILEPTAL [Suspect]
     Indication: CONVULSION
     Dosage: 9 ML, BID, ORAL
     Route: 048
     Dates: start: 20050101
  2. DIASTAT [Concomitant]
  3. URECHOLINE [Concomitant]
  4. ROBINUL (GLYCOPYRRONIUM BROMIDE) [Concomitant]
  5. MELATONIN [Concomitant]
  6. PULMICORT [Concomitant]
  7. XOPENEX [Concomitant]
  8. VITAMINS (NO INGREDIENTS/SUBSTANCES) [Concomitant]

REACTIONS (2)
  - CONVULSION [None]
  - ELECTROENCEPHALOGRAM [None]
